FAERS Safety Report 8480123-0 (Version None)
Quarter: 2012Q2

REPORT INFORMATION
  Report Type: 
  Country: None (occurrence: None)
  Receive Date: 20120629
  Receipt Date: 20120619
  Transmission Date: 20120825
  Serious: Yes (Other)
  Sender: FDA-Public Use
  Company Number: US-ELI_LILLY_AND_COMPANY-US201206006205

PATIENT
  Sex: Male
  Weight: 72.562 kg

DRUGS (5)
  1. METAMUCIL-2 [Concomitant]
     Indication: CONSTIPATION
  2. ZYPREXA [Suspect]
     Dosage: 2.5 MG, QD
  3. ZYPREXA [Suspect]
     Indication: SLEEP DISORDER
     Dosage: 2.5 MG, QD
  4. COLACE [Concomitant]
     Indication: CONSTIPATION
  5. ZYPREXA [Suspect]
     Dosage: 5 MG, QD

REACTIONS (9)
  - ANGER [None]
  - WEIGHT DECREASED [None]
  - CROHN'S DISEASE [None]
  - ABNORMAL BEHAVIOUR [None]
  - OFF LABEL USE [None]
  - BENIGN GASTROINTESTINAL NEOPLASM [None]
  - ANXIETY [None]
  - AGITATION [None]
  - FRUSTRATION [None]
